FAERS Safety Report 7807503-8 (Version None)
Quarter: 2011Q4

REPORT INFORMATION
  Report Type: 
  Country: None (occurrence: None)
  Receive Date: 20111011
  Receipt Date: 20111007
  Transmission Date: 20120403
  Serious: Yes (Hospitalization)
  Sender: FDA-Public Use
  Company Number: US-GLAXOSMITHKLINE-A0791895A

PATIENT
  Age: 61 Year
  Sex: Female
  Weight: 106.8 kg

DRUGS (4)
  1. GLUCOPHAGE [Concomitant]
  2. AVANDAMET [Suspect]
     Indication: DIABETES MELLITUS
     Dosage: 1TAB PER DAY
     Dates: start: 20030812
  3. AVANDIA [Suspect]
     Indication: DIABETES MELLITUS
     Dosage: 4MG TWICE PER DAY
     Route: 048
     Dates: start: 20050401, end: 20090301
  4. ALDACTAZIDE [Concomitant]

REACTIONS (1)
  - MYOCARDIAL INFARCTION [None]
